FAERS Safety Report 6571788-9 (Version None)
Quarter: 2010Q1

REPORT INFORMATION
  Report Type: 
  Country: None (occurrence: None)
  Receive Date: 20100205
  Receipt Date: 20100128
  Transmission Date: 20100710
  Serious: Yes (Other)
  Sender: FDA-Public Use
  Company Number: US-JNJFOC-20100200572

PATIENT
  Sex: Female
  Weight: 52.16 kg

DRUGS (5)
  1. TOPAMAX [Suspect]
     Indication: MIGRAINE PROPHYLAXIS
     Dosage: 150 MG IN AM AND 150 MG IN PM
     Route: 048
  2. DIAZEPAM [Concomitant]
     Indication: TREMOR
     Route: 065
  3. HYDROCODONE [Concomitant]
     Indication: PAIN
     Route: 065
  4. PROMETHAZINE [Concomitant]
     Indication: PAIN
     Route: 065
  5. MINOXIDIL [Concomitant]
     Indication: ALOPECIA
     Route: 065

REACTIONS (7)
  - ALOPECIA [None]
  - CENTRAL NERVOUS SYSTEM LESION [None]
  - HYPOAESTHESIA [None]
  - NAUSEA [None]
  - TRANSIENT ISCHAEMIC ATTACK [None]
  - TREMOR [None]
  - WEIGHT DECREASED [None]
